FAERS Safety Report 13616353 (Version 1)
Quarter: 2017Q2

REPORT INFORMATION
  Report Type: Spontaneous
  Country: US (occurrence: US)
  Receive Date: 20170606
  Receipt Date: 20170606
  Transmission Date: 20170830
  Serious: Yes (Hospitalization)
  Sender: FDA-Public Use
  Company Number: None

PATIENT
  Age: 85 Year
  Sex: Male
  Weight: 74.84 kg

DRUGS (3)
  1. ENTRESTO [Suspect]
     Active Substance: SACUBITRIL\VALSARTAN
     Indication: CARDIAC FAILURE CONGESTIVE
     Dosage: DOSE AMOUNT - 49/51MG BID ORAL
     Route: 048
  2. BETA BLOCKER [Concomitant]
     Active Substance: UNSPECIFIED INGREDIENT
  3. ACE INHIBITOR [Concomitant]
     Active Substance: UNSPECIFIED INGREDIENT

REACTIONS (10)
  - Dyspnoea [None]
  - Condition aggravated [None]
  - Fall [None]
  - Dysstasia [None]
  - Cough [None]
  - Oedema peripheral [None]
  - General physical health deterioration [None]
  - Urine output decreased [None]
  - Asthenia [None]
  - Hypotension [None]
